FAERS Safety Report 23514161 (Version 4)
Quarter: 2025Q1

REPORT INFORMATION
  Report Type: Spontaneous
  Country: US (occurrence: US)
  Receive Date: 20240212
  Receipt Date: 20250129
  Transmission Date: 20250409
  Serious: Yes (Hospitalization)
  Sender: PFIZER
  Company Number: US-PFIZER INC-202300426651

PATIENT
  Age: 75 Year
  Sex: Female
  Weight: 125.19 kg

DRUGS (1)
  1. IBRANCE [Suspect]
     Active Substance: PALBOCICLIB
     Indication: Breast cancer metastatic
     Dates: start: 2023

REACTIONS (7)
  - Dehydration [Unknown]
  - Bronchitis [Unknown]
  - Pain in extremity [Recovered/Resolved]
  - Infection [Not Recovered/Not Resolved]
  - Bone pain [Recovered/Resolved]
  - Urinary tract infection [Unknown]
  - Intentional dose omission [Unknown]

NARRATIVE: CASE EVENT DATE: 20231123
